FAERS Safety Report 9378540 (Version 1)
Quarter: 2013Q3

REPORT INFORMATION
  Report Type: Spontaneous
  Country: IT (occurrence: IT)
  Receive Date: 20130702
  Receipt Date: 20130702
  Transmission Date: 20140515
  Serious: Yes (Hospitalization)
  Sender: FDA-Public Use
  Company Number: IT-ROCHE-1227460

PATIENT
  Age: 42 Year
  Sex: Male

DRUGS (3)
  1. NAPROSYN [Suspect]
     Indication: INFLUENZA
     Dosage: SUSPENSION
     Route: 048
     Dates: start: 20130507, end: 20130508
  2. TACHIPIRINA [Suspect]
     Indication: PYREXIA
     Route: 048
     Dates: start: 20130507, end: 20130509
  3. OKI [Suspect]
     Indication: INFLUENZA
     Route: 048
     Dates: start: 20130508, end: 20130509

REACTIONS (2)
  - Erythema [Recovered/Resolved]
  - Pruritus [Recovered/Resolved]
